FAERS Safety Report 11130103 (Version 1)
Quarter: 2015Q2

REPORT INFORMATION
  Report Type: Spontaneous
  Country: US (occurrence: US)
  Receive Date: 20150521
  Receipt Date: 20150521
  Transmission Date: 20150821
  Serious: No
  Sender: FDA-Public Use
  Company Number: US-TEVA-561231USA

PATIENT
  Sex: Male
  Weight: 106.69 kg

DRUGS (8)
  1. NUVIGIL [Suspect]
     Active Substance: ARMODAFINIL
     Indication: SLEEP APNOEA SYNDROME
     Dates: start: 2009, end: 2010
  2. SEROQUEL XR [Concomitant]
     Active Substance: QUETIAPINE FUMARATE
     Indication: TOURETTE^S DISORDER
     Dosage: 600 MILLIGRAM DAILY; EVERY HS
  3. PROVIGIL [Suspect]
     Active Substance: MODAFINIL
     Dates: end: 2009
  4. SONATA [Concomitant]
     Active Substance: ZALEPLON
     Indication: INSOMNIA
     Dosage: 10 MILLIGRAM DAILY; EVERY HS
  5. CLONAZEPAM. [Concomitant]
     Active Substance: CLONAZEPAM
     Indication: ANXIETY
     Dosage: 1-1.5 MG
  6. MULTIVITAMIN [Concomitant]
     Active Substance: VITAMINS
     Indication: NUTRITIONAL SUPPLEMENTATION
  7. NUVIGIL [Suspect]
     Active Substance: ARMODAFINIL
     Dates: start: 2011
  8. VIIBRYD [Concomitant]
     Active Substance: VILAZODONE HYDROCHLORIDE
     Indication: DEPRESSION
     Dosage: 40 MILLIGRAM DAILY; EVERY HS

REACTIONS (4)
  - Head injury [Unknown]
  - Back pain [Recovered/Resolved]
  - Abdominal distension [Recovered/Resolved]
  - Drug effect decreased [Unknown]

NARRATIVE: CASE EVENT DATE: 2001
